FAERS Safety Report 18131587 (Version 1)
Quarter: 2020Q3

REPORT INFORMATION
  Report Type: Spontaneous
  Country: FR (occurrence: FR)
  Receive Date: 20200810
  Receipt Date: 20200810
  Transmission Date: 20201103
  Serious: Yes (Other)
  Sender: FDA-Public Use
  Company Number: FR-ROCHE-2648722

PATIENT
  Sex: Female
  Weight: 80 kg

DRUGS (2)
  1. OCREVUS [Suspect]
     Active Substance: OCRELIZUMAB
     Dosage: M6 DOSE
     Route: 042
     Dates: start: 20200617, end: 20200617
  2. OCREVUS [Suspect]
     Active Substance: OCRELIZUMAB
     Indication: RELAPSING-REMITTING MULTIPLE SCLEROSIS
     Route: 042
     Dates: start: 20191217, end: 20200617

REACTIONS (2)
  - Decreased embryo viability [Unknown]
  - Pregnancy [Unknown]
